FAERS Safety Report 10446974 (Version 1)
Quarter: 2014Q3

REPORT INFORMATION
  Report Type: Spontaneous
  Country: GB (occurrence: GB)
  Receive Date: 20140911
  Receipt Date: 20140911
  Transmission Date: 20150326
  Serious: Yes (Hospitalization, Other)
  Sender: FDA-Public Use
  Company Number: GB-TEVA-506630ISR

PATIENT
  Age: 75 Year
  Sex: Male

DRUGS (6)
  1. PARACETAMOL [Concomitant]
     Active Substance: ACETAMINOPHEN
     Dosage: 1G FOUR TIMES DAILY WHEN REQUIRED
  2. CYCLOPHOSPHAMIDE. [Suspect]
     Active Substance: CYCLOPHOSPHAMIDE
     Indication: PLASMA CELL MYELOMA
     Route: 048
     Dates: end: 20120626
  3. LANSOPRAZOLE. [Concomitant]
     Active Substance: LANSOPRAZOLE
  4. FUROSEMIDE. [Suspect]
     Active Substance: FUROSEMIDE
     Route: 048
     Dates: end: 20120626
  5. THALIDOMIDE [Suspect]
     Active Substance: THALIDOMIDE
     Indication: PLASMA CELL MYELOMA
     Route: 048
     Dates: end: 20120626
  6. SIMVASTATIN. [Concomitant]
     Active Substance: SIMVASTATIN
     Dosage: AT NIGHT

REACTIONS (2)
  - Diarrhoea [Recovered/Resolved]
  - Renal failure acute [Recovered/Resolved]

NARRATIVE: CASE EVENT DATE: 20120626
